FAERS Safety Report 9363476 (Version 2)
Quarter: 2013Q4

REPORT INFORMATION
  Report Type: Spontaneous
  Country: TN (occurrence: None)
  Receive Date: 20130618
  Receipt Date: 20131224
  Transmission Date: 20140711
  Serious: Yes (Other)
  Sender: FDA-Public Use
  Company Number: SYM-2013-04589

PATIENT
  Age: 66 Year
  Sex: Female

DRUGS (4)
  1. DILTIAZEM HYDROCHLORIDE [Suspect]
     Indication: HYPERTENSION
     Route: 048
     Dates: start: 20120412
  2. METFORMIN(METFORMIN)(METFORMIN) [Concomitant]
  3. IRBESARTAN (IRBESARTAN) (IRBESARTAN) [Concomitant]
  4. HYDROCHLOROTHIAZIDE (HYDROCHLOROTHIAZIDE) (HYDROCHLOROTHIAZIDE) [Concomitant]

REACTIONS (4)
  - Skin exfoliation [None]
  - Rash pustular [None]
  - Pyrexia [None]
  - Leukocytosis [None]
